FAERS Safety Report 24970236 (Version 1)
Quarter: 2025Q1

REPORT INFORMATION
  Report Type: Spontaneous
  Country: US (occurrence: None)
  Receive Date: 20250214
  Receipt Date: 20250214
  Transmission Date: 20250409
  Serious: Yes (Hospitalization)
  Sender: FDA-CTU
  Company Number: None

PATIENT
  Sex: Female

DRUGS (1)
  1. IBRANCE [Suspect]
     Active Substance: PALBOCICLIB
     Indication: Breast cancer female
     Route: 048
     Dates: start: 202203

REACTIONS (6)
  - Decreased activity [None]
  - Amnesia [None]
  - Impaired driving ability [None]
  - Road traffic accident [None]
  - Unresponsive to stimuli [None]
  - Hypoacusis [None]
